FAERS Safety Report 4962108-1 (Version None)
Quarter: 2006Q2

REPORT INFORMATION
  Report Type: 
  Country: None (occurrence: None)
  Receive Date: 20060404
  Receipt Date: 20060328
  Transmission Date: 20061013
  Serious: Yes (Death, Life-Threatening, Hospitalization)
  Sender: FDA-Public Use
  Company Number: ES-BRISTOL-MYERS SQUIBB COMPANY-13328539

PATIENT
  Age: 88 Year
  Sex: Female

DRUGS (4)
  1. SINEMET [Suspect]
     Indication: PARKINSON'S DISEASE
     Route: 048
     Dates: start: 20050601, end: 20050914
  2. OMEPRAZOLE [Concomitant]
     Dosage: DURATION OF THERAPY:  ^LONG TERM^
     Route: 048
     Dates: end: 20050914
  3. DISTRANEURINE [Concomitant]
     Dosage: DURATION OF THERAPY:  ^LONG TERM^
     Route: 048
     Dates: end: 20050914
  4. IBUPROFEN [Concomitant]
     Indication: ARTHRALGIA
     Dosage: DOSE VALUE:  ^LONG TERM^
     Route: 048
     Dates: end: 20050914

REACTIONS (2)
  - GASTROINTESTINAL HAEMORRHAGE [None]
  - NEUROLEPTIC MALIGNANT SYNDROME [None]
